FAERS Safety Report 23531944 (Version 1)
Quarter: 2024Q1

REPORT INFORMATION
  Report Type: Spontaneous
  Country: US (occurrence: US)
  Receive Date: 20240216
  Receipt Date: 20240216
  Transmission Date: 20240409
  Serious: No
  Sender: FDA-Public Use
  Company Number: US-SA-SAC20240208001369

PATIENT
  Age: 56 Year
  Sex: Female

DRUGS (7)
  1. DUPIXENT [Suspect]
     Active Substance: DUPILUMAB
     Indication: Nasal polyps
     Dosage: 300MG; EVERY 14 DAYS
     Route: 058
     Dates: start: 20230926
  2. OZEMPIC [Concomitant]
     Active Substance: SEMAGLUTIDE
  3. WELLBUTRIN [Concomitant]
     Active Substance: BUPROPION HYDROCHLORIDE
  4. PROZAC [Concomitant]
     Active Substance: FLUOXETINE HYDROCHLORIDE
     Dosage: UNK, DAILY
  5. CYANOCOBALAMIN [Concomitant]
     Active Substance: CYANOCOBALAMIN
  6. CARBIDOPA [Concomitant]
     Active Substance: CARBIDOPA
  7. RIVASTIGMINE [Concomitant]
     Active Substance: RIVASTIGMINE

REACTIONS (3)
  - Rash papular [Recovering/Resolving]
  - Pruritus [Unknown]
  - Product dose omission in error [Unknown]
